FAERS Safety Report 7714733-2 (Version None)
Quarter: 2011Q3

REPORT INFORMATION
  Report Type: 
  Country: None (occurrence: None)
  Receive Date: 20110804
  Receipt Date: 20101202
  Transmission Date: 20111222
  Serious: Yes (Other)
  Sender: FDA-Public Use
  Company Number: DSU-2010-06726

PATIENT
  Age: 51 Year
  Sex: Female
  Weight: 109.7 kg

DRUGS (8)
  1. LIPITOR [Suspect]
     Indication: BLOOD CHOLESTEROL INCREASED
     Dosage: 40 MG (40 MG,QD),PER ORAL
     Route: 048
     Dates: start: 20080101, end: 20100601
  2. TRIPILEX (FENOFIBRATE) (CAPSULE) (FENOFIBRATE) [Concomitant]
  3. FIBRICOR (FENOFIBRATE) (TABLET) (FENOFIBRATE) [Concomitant]
  4. BENICAR HCT [Suspect]
     Indication: HYPERTENSION
     Dosage: 20/12.5 MG (QD),PER ORAL ; 20/12.5 MG (QD),PER ORAL
     Route: 048
     Dates: start: 20080401, end: 20100601
  5. BENICAR HCT [Suspect]
     Indication: HYPERTENSION
     Dosage: 20/12.5 MG (QD),PER ORAL ; 20/12.5 MG (QD),PER ORAL
     Route: 048
     Dates: start: 20100101, end: 20101011
  6. LOVASTATIN [Suspect]
     Indication: BLOOD CHOLESTEROL INCREASED
     Dosage: 40 MG (40 MG,QD),PER ORAL
     Route: 048
     Dates: start: 20100601, end: 20100731
  7. ATENOLOL [Concomitant]
  8. BENAZEPRIL HYDROCHLORIDE [Suspect]
     Indication: HYPERTENSION
     Dosage: PER ORAL
     Route: 048
     Dates: start: 20100601, end: 20100901

REACTIONS (4)
  - SINUS DISORDER [None]
  - ANGIOEDEMA [None]
  - MALAISE [None]
  - COUGH [None]
